FAERS Safety Report 14326847 (Version 1)
Quarter: 2017Q4

REPORT INFORMATION
  Report Type: Spontaneous
  Country: AU (occurrence: AU)
  Receive Date: 20171227
  Receipt Date: 20171227
  Transmission Date: 20180321
  Serious: Yes (Other)
  Sender: FDA-Public Use
  Company Number: AU-ABBVIE-17S-008-2204138-00

PATIENT
  Sex: Male

DRUGS (11)
  1. MOVICOL [Suspect]
     Active Substance: POLYETHYLENE GLYCOL 3350\POTASSIUM CHLORIDE\SODIUM BICARBONATE\SODIUM CHLORIDE
     Indication: PRODUCT USED FOR UNKNOWN INDICATION
     Route: 065
  2. CLOZAPINE. [Suspect]
     Active Substance: CLOZAPINE
     Indication: PRODUCT USED FOR UNKNOWN INDICATION
     Route: 065
  3. ESCITALOPRAM [Suspect]
     Active Substance: ESCITALOPRAM OXALATE
     Indication: PRODUCT USED FOR UNKNOWN INDICATION
     Route: 065
  4. LIPIDIL [Suspect]
     Active Substance: FENOFIBRATE
     Indication: PRODUCT USED FOR UNKNOWN INDICATION
     Route: 065
  5. ENTECAVIR. [Suspect]
     Active Substance: ENTECAVIR
     Indication: PRODUCT USED FOR UNKNOWN INDICATION
     Route: 065
  6. NORVASK [Suspect]
     Active Substance: AMLODIPINE BESYLATE
     Indication: PRODUCT USED FOR UNKNOWN INDICATION
     Route: 065
  7. FISHAPHOS (HERBS\MINERALS\VITAMINS) [Suspect]
     Active Substance: HERBS\MINERALS\VITAMINS
     Indication: PRODUCT USED FOR UNKNOWN INDICATION
     Route: 065
  8. OSTELIN VITAMIN D [Suspect]
     Active Substance: CHOLECALCIFEROL
     Indication: PRODUCT USED FOR UNKNOWN INDICATION
     Route: 065
  9. AMISULPRIDE [Suspect]
     Active Substance: AMISULPRIDE
     Indication: PRODUCT USED FOR UNKNOWN INDICATION
     Route: 065
  10. CLOPINE [Suspect]
     Active Substance: CLOZAPINE
     Indication: PRODUCT USED FOR UNKNOWN INDICATION
     Route: 065
  11. ZANTAC [Suspect]
     Active Substance: RANITIDINE HYDROCHLORIDE
     Indication: PRODUCT USED FOR UNKNOWN INDICATION
     Route: 065

REACTIONS (24)
  - Hepatic cirrhosis [Unknown]
  - Hepatic steatosis [Unknown]
  - Hypertension [Unknown]
  - Tachycardia [Unknown]
  - Impaired fasting glucose [Unknown]
  - Renal cyst [Unknown]
  - Constipation [Unknown]
  - Anxiety disorder [Unknown]
  - Gastrooesophageal reflux disease [Unknown]
  - Cholelithiasis [Unknown]
  - Schizophrenia [Unknown]
  - Acute kidney injury [Unknown]
  - Left ventricular dysfunction [Unknown]
  - Vitamin D deficiency [Unknown]
  - Chronic kidney disease [Unknown]
  - Hepatitis B [Unknown]
  - Hypertriglyceridaemia [Unknown]
  - Hypoacusis [Unknown]
  - Renal impairment [Unknown]
  - Oesophagitis [Unknown]
  - Electrocardiogram QT prolonged [Unknown]
  - Gastritis [Unknown]
  - Metabolic syndrome [Unknown]
  - Varices oesophageal [Unknown]
